FAERS Safety Report 5972034-7 (Version None)
Quarter: 2008Q4

REPORT INFORMATION
  Report Type: 
  Country: None (occurrence: None)
  Receive Date: 20081125
  Receipt Date: 20081110
  Transmission Date: 20090506
  Serious: No
  Sender: FDA-Public Use
  Company Number: US025018

PATIENT
  Sex: Male

DRUGS (5)
  1. FENTORA [Suspect]
     Indication: NEUROMA
     Dosage: 600MCG-120MCG QID PRN BUCCAL
     Route: 002
  2. ACTIQ [Suspect]
     Indication: NEUROMA
     Dosage: 1600 UG QID PRN BUCCAL
     Route: 002
  3. DURAGESIC-100 [Concomitant]
  4. METHADONE HCL [Concomitant]
  5. OXYFAST [Concomitant]

REACTIONS (2)
  - DRUG INEFFECTIVE [None]
  - DRUG PRESCRIBING ERROR [None]
